FAERS Safety Report 17190740 (Version 1)
Quarter: 2019Q4

REPORT INFORMATION
  Report Type: Spontaneous
  Country: US (occurrence: US)
  Receive Date: 20191220
  Receipt Date: 20191220
  Transmission Date: 20200122
  Serious: Yes (Hospitalization, Other)
  Sender: FDA-Public Use
  Company Number: None

PATIENT
  Age: 42 Year
  Sex: Female

DRUGS (12)
  1. MESNEX [Suspect]
     Active Substance: MESNA
     Indication: PRODUCT USED FOR UNKNOWN INDICATION
     Dosage: ?          OTHER FREQUENCY:AT 2HRS + 6HRS;?
     Route: 048
     Dates: start: 20191002
  2. ONDANSETRON [Concomitant]
     Active Substance: ONDANSETRON
  3. DEXAMETHASONE. [Concomitant]
     Active Substance: DEXAMETHASONE
  4. VALACYCLOVIR [Concomitant]
     Active Substance: VALACYCLOVIR HYDROCHLORIDE
  5. OMEPRAZOLE. [Concomitant]
     Active Substance: OMEPRAZOLE
  6. ACYCLOVIR. [Concomitant]
     Active Substance: ACYCLOVIR
  7. TRAMADOL. [Concomitant]
     Active Substance: TRAMADOL
  8. POT CHLORIDE [Concomitant]
     Active Substance: POTASSIUM CHLORIDE
  9. PHENAZOPYRID [Concomitant]
  10. LEVOFLOXACIN. [Concomitant]
     Active Substance: LEVOFLOXACIN
  11. TRAZODONE [Concomitant]
     Active Substance: TRAZODONE HYDROCHLORIDE
  12. METOCLOPRAM [Concomitant]
     Active Substance: METOCLOPRAMIDE

REACTIONS (1)
  - Loss of consciousness [None]
